FAERS Safety Report 22105364 (Version 2)
Quarter: 2023Q1

REPORT INFORMATION
  Report Type: Spontaneous
  Country: US (occurrence: US)
  Receive Date: 20230317
  Receipt Date: 20230331
  Transmission Date: 20230418
  Serious: No
  Sender: FDA-Public Use
  Company Number: US-TOLMAR, INC.-23US039428

PATIENT
  Age: 39 Year
  Sex: Male

DRUGS (1)
  1. KETOCONAZOLE [Suspect]
     Active Substance: KETOCONAZOLE
     Indication: Alopecia
     Dosage: UNK
     Route: 003
     Dates: start: 2022

REACTIONS (3)
  - Off label use [Unknown]
  - Abdominal pain [Recovered/Resolved]
  - Skin irritation [Recovered/Resolved]

NARRATIVE: CASE EVENT DATE: 20220101
